FAERS Safety Report 5748606-1 (Version None)
Quarter: 2008Q2

REPORT INFORMATION
  Report Type: 
  Country: None (occurrence: None)
  Receive Date: 20080512
  Receipt Date: 20080430
  Transmission Date: 20081010
  Serious: Yes (Other)
  Sender: FDA-Public Use
  Company Number: THYM-1000681

PATIENT
  Age: 51 Year
  Sex: Female

DRUGS (10)
  1. THYMOGLOBULIN [Suspect]
     Indication: BONE MARROW TRANSPLANT
     Dosage: 30 MG, QD, INTRAVENOUS, 110 MG, QD, INTRAVENOUS
     Route: 042
     Dates: start: 20080329, end: 20080329
  2. THYMOGLOBULIN [Suspect]
     Indication: BONE MARROW TRANSPLANT
     Dosage: 30 MG, QD, INTRAVENOUS, 110 MG, QD, INTRAVENOUS
     Route: 042
     Dates: start: 20080330, end: 20080401
  3. POLARAMINE [Concomitant]
  4. SOLU-MEDROL [Concomitant]
  5. HEPARIN [Concomitant]
  6. CITALOPRAM HYDROBROMIDE [Concomitant]
  7. OMEPRAZOLE [Concomitant]
  8. ZOVIRAX [Concomitant]
  9. KEPPRA [Concomitant]
  10. ZYLORIC (ALLOPURINOL SODIUM) [Concomitant]

REACTIONS (2)
  - CYTOLYTIC HEPATITIS [None]
  - DERMATITIS EXFOLIATIVE [None]
